FAERS Safety Report 12628606 (Version 5)
Quarter: 2018Q1

REPORT INFORMATION
  Report Type: Spontaneous
  Country: US (occurrence: US)
  Receive Date: 20160808
  Receipt Date: 20180321
  Transmission Date: 20180508
  Serious: Yes (Other)
  Sender: FDA-Public Use
  Company Number: US-JAZZ-2016-US-003959

PATIENT
  Sex: Female

DRUGS (31)
  1. CALMS FORTE [Concomitant]
  2. MIRENA [Concomitant]
     Active Substance: LEVONORGESTREL
  3. ALOE VERA [Concomitant]
     Active Substance: ALOE VERA LEAF
  4. GLUCOSAMINE [Concomitant]
     Active Substance: GLUCOSAMINE
  5. L-GLUTAMINE [Concomitant]
  6. VICODIN [Concomitant]
     Active Substance: ACETAMINOPHEN\HYDROCODONE BITARTRATE
  7. MULTI VITA BETS WITH FLUORIDE [Concomitant]
  8. ELM [Concomitant]
     Active Substance: ELM
  9. XYREM [Suspect]
     Active Substance: SODIUM OXYBATE
     Dosage: 4.5 G, BID
     Route: 048
     Dates: start: 201103
  10. FISH OIL 1-A-DAY + VITAMIN D3 [Concomitant]
  11. LICORICE ROOT [Concomitant]
     Active Substance: LICORICE
  12. MAGNESIUM OXIDE. [Concomitant]
     Active Substance: MAGNESIUM OXIDE
  13. XYREM [Suspect]
     Active Substance: SODIUM OXYBATE
     Indication: NARCOLEPSY
     Dosage: 2.25 G, BID
     Route: 048
     Dates: start: 201101, end: 201103
  14. VITAMIN D [Concomitant]
     Active Substance: CHOLECALCIFEROL
  15. OFLOXACIN. [Concomitant]
     Active Substance: OFLOXACIN
  16. ZINC CHELATE [Concomitant]
  17. AZO [Concomitant]
     Active Substance: PHENAZOPYRIDINE HYDROCHLORIDE
     Indication: PRODUCT USED FOR UNKNOWN INDICATION
  18. LAMICTAL XR [Concomitant]
     Active Substance: LAMOTRIGINE
  19. MARCAINE [Concomitant]
     Active Substance: BUPIVACAINE HYDROCHLORIDE
  20. CATS CLAW [Concomitant]
  21. MARSHMALLOW [Concomitant]
     Active Substance: ALCOHOL
  22. CALCIUM + MAGNESIUM [Concomitant]
  23. PROZAC [Concomitant]
     Active Substance: FLUOXETINE HYDROCHLORIDE
  24. SEPTOCAINE [Concomitant]
     Active Substance: ARTICAINE HYDROCHLORIDE\EPINEPHRINE BITARTRATE
  25. KIRKLAND SIGNATURE ALLER TEC ALLERGY [Concomitant]
     Active Substance: CETIRIZINE HYDROCHLORIDE
  26. CHOLINE CITRATE [Concomitant]
  27. LECITHIN [Concomitant]
     Active Substance: LECITHIN
  28. EPINEPHRINE. [Concomitant]
     Active Substance: EPINEPHRINE
  29. VENLAFAXINE HCL [Concomitant]
     Active Substance: VENLAFAXINE HYDROCHLORIDE
  30. VITAMIN B12 [Concomitant]
     Active Substance: CYANOCOBALAMIN
  31. KEPPRA [Concomitant]
     Active Substance: LEVETIRACETAM

REACTIONS (3)
  - Hypertonic bladder [Recovering/Resolving]
  - Ovarian cyst [Unknown]
  - Dysuria [Not Recovered/Not Resolved]
